FAERS Safety Report 9583891 (Version 1)
Quarter: 2013Q4

REPORT INFORMATION
  Report Type: Spontaneous
  Country: US (occurrence: US)
  Receive Date: 20131002
  Receipt Date: 20131002
  Transmission Date: 20140711
  Serious: No
  Sender: FDA-Public Use
  Company Number: US-AMGEN-USASP2013050590

PATIENT
  Age: 59 Year
  Sex: Female

DRUGS (18)
  1. ENBREL [Suspect]
     Indication: PRODUCT USED FOR UNKNOWN INDICATION
     Dosage: 50 MG, QWK
     Route: 058
  2. METFORMIN [Suspect]
     Dosage: 500 MG, UNK
  3. VICTOZA [Concomitant]
     Dosage: 18MG/3ML, UNK
  4. LEVEMIR [Concomitant]
     Dosage: UNK
  5. NEXIUM                             /01479302/ [Concomitant]
     Dosage: 40 MG, UNK
  6. LEXAPRO [Concomitant]
     Dosage: 10 MG, UNK
  7. PREDNISONE [Concomitant]
     Dosage: 20 MG, UNK
  8. AMBIEN [Concomitant]
     Dosage: 10 MG, UNK
  9. FOLIC ACID [Concomitant]
     Dosage: UNK
  10. PROCARDIA                          /00340701/ [Concomitant]
     Dosage: 60 MUG, UNK
  11. DIOVAN [Concomitant]
     Dosage: 320 MG, UNK
  12. PLAQUENIL                          /00072602/ [Concomitant]
     Dosage: 200 MG, UNK
  13. METHOTREXATE [Concomitant]
     Dosage: 200/8ML, UNK
  14. ATENOLOL [Concomitant]
     Dosage: 25 MG, UNK
  15. CRESTOR [Concomitant]
     Dosage: 10 MG, UNK
  16. POTASSIUM [Concomitant]
     Dosage: 99 MG, UNK
  17. FLEXERIL                           /00428402/ [Concomitant]
     Dosage: 10 MG, UNK
  18. TRAMADOL HCL [Concomitant]
     Dosage: 200 MG, UNK

REACTIONS (3)
  - Dry mouth [Unknown]
  - Nausea [Unknown]
  - Vomiting [Unknown]
